FAERS Safety Report 4334384-X (Version None)
Quarter: 2004Q1

REPORT INFORMATION
  Report Type: 
  Country: None (occurrence: None)
  Receive Date: 20040326
  Receipt Date: 20040112
  Transmission Date: 20041129
  Serious: No
  Sender: FDA-Public Use
  Company Number: US-JNJFOC-20040102269

PATIENT
  Age: 81 Year
  Sex: Female

DRUGS (8)
  1. REMINYL [Suspect]
     Indication: DEMENTIA ALZHEIMER'S TYPE
     Dosage: 12 MG, 2 IN 8 HOUR, ORAL; 8 MG, 2 IN 1 DAY, ORAL
     Route: 048
     Dates: start: 20021101, end: 20040105
  2. REMINYL [Suspect]
     Indication: DEMENTIA ALZHEIMER'S TYPE
     Dosage: 12 MG, 2 IN 8 HOUR, ORAL; 8 MG, 2 IN 1 DAY, ORAL
     Route: 048
     Dates: start: 20040105
  3. ATENOLOL [Concomitant]
  4. ECOTRIN (ACETYLSALICYCLIC ACID) TABLETS [Concomitant]
  5. GLUCOPHAGE (METFORMIN HYDROCHLORIDE) TABLETS [Concomitant]
  6. LEVOXAL (LEVOTHYROXINE SODIUM) TABLETS [Concomitant]
  7. LIPATOR (ATORVASTATIN) TABLETS [Concomitant]
  8. AMBIEN [Concomitant]

REACTIONS (5)
  - ABDOMINAL PAIN UPPER [None]
  - ABNORMAL BEHAVIOUR [None]
  - AGGRESSION [None]
  - CRYING [None]
  - INSOMNIA [None]
